FAERS Safety Report 9741003 (Version 1)
Quarter: 2013Q4

REPORT INFORMATION
  Report Type: Spontaneous
  Country: CA (occurrence: CA)
  Receive Date: 20131209
  Receipt Date: 20131209
  Transmission Date: 20140711
  Serious: Yes (Other)
  Sender: FDA-Public Use
  Company Number: CA-ASTRAZENECA-2013SE88029

PATIENT
  Age: 64 Year
  Sex: Male

DRUGS (4)
  1. RAMIPRIL [Suspect]
     Route: 048
  2. CRESTOR [Suspect]
     Route: 048
  3. METFORMIN [Suspect]
     Route: 048
  4. SENSODYNE-F BRILLANTWHITENING TOOTHPASTE [Suspect]
     Route: 004

REACTIONS (10)
  - Discomfort [Recovered/Resolved]
  - Oropharyngeal discomfort [Recovered/Resolved]
  - Oropharyngeal pain [Recovered/Resolved]
  - Speech disorder [Recovered/Resolved]
  - Throat tightness [Recovered/Resolved]
  - Hypersensitivity [Recovered/Resolved]
  - Oedema mouth [Recovered/Resolved]
  - Pharyngeal oedema [Recovered/Resolved]
  - Dyspnoea [Recovered/Resolved]
  - Lip swelling [Recovered/Resolved]
